FAERS Safety Report 10176988 (Version 3)
Quarter: 2014Q2

REPORT INFORMATION
  Report Type: Spontaneous
  Country: CN (occurrence: CN)
  Receive Date: 20140516
  Receipt Date: 20140620
  Transmission Date: 20141212
  Serious: Yes (Hospitalization)
  Sender: FDA-Public Use
  Company Number: CN-ELI_LILLY_AND_COMPANY-CN201403009971

PATIENT
  Age: 58 Year
  Sex: Male

DRUGS (1)
  1. HUMULIN 30% REGULAR, 70% NPH [Suspect]
     Indication: PRODUCT USED FOR UNKNOWN INDICATION
     Dosage: UNK, BID
     Route: 058
     Dates: start: 2004, end: 20140310

REACTIONS (10)
  - Acute painful neuropathy of rapid glycaemic control [Recovering/Resolving]
  - Blood pressure systolic increased [Recovered/Resolved]
  - Arthralgia [Recovering/Resolving]
  - Testicular pain [Recovering/Resolving]
  - Injection site pain [Recovering/Resolving]
  - Scrotal oedema [Recovering/Resolving]
  - Blood sodium decreased [Recovering/Resolving]
  - Blood chloride decreased [Recovering/Resolving]
  - Blood glucose increased [Recovering/Resolving]
  - Mean cell haemoglobin concentration increased [Recovering/Resolving]
